FAERS Safety Report 13942915 (Version 1)
Quarter: 2017Q3

REPORT INFORMATION
  Report Type: Spontaneous
  Country: US (occurrence: US)
  Receive Date: 20170907
  Receipt Date: 20170907
  Transmission Date: 20171128
  Serious: Yes (Other)
  Sender: FDA-Public Use
  Company Number: None

PATIENT
  Sex: Female
  Weight: 72 kg

DRUGS (10)
  1. OPDIVO [Concomitant]
     Active Substance: NIVOLUMAB
  2. VITAMIN D [Concomitant]
     Active Substance: CHOLECALCIFEROL
  3. MYCOPHENOLATE 500MG TAB TEVA [Suspect]
     Active Substance: MYCOPHENOLATE MOFETIL
     Indication: RENAL DISORDER
     Dosage: ?          QUANTITY:3 TABLET(S);?
     Route: 048
     Dates: start: 20140412, end: 20160110
  4. KIDNEY ACTIVATOR [Concomitant]
  5. MAGNESIUM [Concomitant]
     Active Substance: MAGNESIUM
  6. CORAL CALCIUM [Concomitant]
  7. VITAMIN C [Concomitant]
     Active Substance: ASCORBIC ACID
  8. SUPER ALGAE [Concomitant]
  9. CURCUMIN [Concomitant]
     Active Substance: CURCUMIN
  10. VITAMIN B COMPLETE [Concomitant]

REACTIONS (2)
  - Metastases to lung [None]
  - Malignant melanoma [None]

NARRATIVE: CASE EVENT DATE: 20160106
